FAERS Safety Report 10866446 (Version 1)
Quarter: 2015Q1

REPORT INFORMATION
  Report Type: Spontaneous
  Country: US (occurrence: None)
  Receive Date: 20150220
  Receipt Date: 20150220
  Transmission Date: 20150721
  Serious: No
  Sender: FDA-Public Use
  Company Number: None

PATIENT
  Age: 69 Year
  Sex: Male
  Weight: 72.58 kg

DRUGS (11)
  1. IRON PILL [Concomitant]
     Active Substance: IRON
  2. FLUOXOTEIN [Concomitant]
  3. MULTIVITAMIN [Concomitant]
     Active Substance: VITAMINS
  4. METAFORMIN [Concomitant]
  5. 81 MG ASPIRIN [Concomitant]
  6. ENDOCET [Concomitant]
     Active Substance: ACETAMINOPHEN\OXYCODONE HYDROCHLORIDE
  7. FISH OIL [Concomitant]
     Active Substance: FISH OIL
  8. FENOFIBRATE. [Concomitant]
     Active Substance: FENOFIBRATE
  9. CADAVILOL [Concomitant]
  10. LISINOPRIL. [Suspect]
     Active Substance: LISINOPRIL
     Indication: HYPERTENSION
     Dosage: 1 PILL ONCE DAILY
     Route: 048
     Dates: start: 20130420, end: 20150101
  11. ATORVATATIN [Concomitant]

REACTIONS (3)
  - Haemoglobin decreased [None]
  - Red blood cell count decreased [None]
  - Haematocrit decreased [None]

NARRATIVE: CASE EVENT DATE: 20150217
